FAERS Safety Report 6813473-1 (Version None)
Quarter: 2010Q3

REPORT INFORMATION
  Report Type: 
  Country: None (occurrence: None)
  Receive Date: 20100701
  Receipt Date: 20100623
  Transmission Date: 20110219
  Serious: Yes (Other)
  Sender: FDA-Public Use
  Company Number: US-PFIZER INC-2010061077

PATIENT
  Sex: Female
  Weight: 116.57 kg

DRUGS (25)
  1. CHANTIX [Suspect]
     Indication: SMOKING CESSATION THERAPY
     Dosage: 0.5 MG, 1X/DAY
     Route: 048
     Dates: start: 20100401, end: 20100513
  2. LYRICA [Concomitant]
     Indication: DIABETIC NEUROPATHY
     Dosage: 150 MG, 2X/DAY
     Route: 048
  3. GABAPENTIN [Concomitant]
     Indication: DIABETIC NEUROPATHY
     Dosage: 400 MG, 2X/DAY
  4. LIPITOR [Concomitant]
     Indication: BLOOD CHOLESTEROL INCREASED
     Dosage: 10 MG, 1X/DAY
     Route: 048
  5. ACTONEL [Concomitant]
     Indication: OSTEOPOROSIS
     Dosage: 35 MG, WEEKLY
     Route: 048
  6. ACETYLSALICYLIC ACID [Concomitant]
     Dosage: 81 MG, 1X/DAY
  7. DETROL LA [Concomitant]
     Indication: INCONTINENCE
     Dosage: 4 MG, 1X/DAY
     Route: 048
  8. DETROL LA [Concomitant]
  9. CYMBALTA [Concomitant]
     Dosage: 60 MG, 2X/DAY
     Route: 048
  10. FEXOFENADINE [Concomitant]
     Indication: HYPERSENSITIVITY
     Dosage: 60 MG, 2X/DAY
  11. HYDROMORPHONE [Concomitant]
     Indication: BACK PAIN
     Dosage: 4 MG, EVERY 4 HOURS AS NEEDED
     Route: 048
  12. MELOXICAM [Concomitant]
     Indication: MUSCLE RELAXANT THERAPY
     Dosage: 7.5 MG, 1X/DAY
  13. METHOCARBAMOL [Concomitant]
     Indication: BACK PAIN
     Dosage: 750 MG, 2X/DAY
  14. CLONAZEPAM [Concomitant]
     Dosage: 1 MG, AT BEDTIME
  15. CLONAZEPAM [Concomitant]
  16. SERTRALINE [Concomitant]
     Dosage: UNK
     Route: 048
  17. TRAZODONE [Concomitant]
     Indication: ANALGESIC THERAPY
     Dosage: 100 MG, 2X/DAY
     Route: 048
  18. TRAZODONE [Concomitant]
     Indication: SLEEP DISORDER
  19. MULTI-VITAMINS [Concomitant]
     Dosage: UNK
     Route: 048
  20. VITAMIN C [Concomitant]
     Dosage: UNK
  21. CALCIUM CITRATE/COLECALCIFEROL [Concomitant]
     Dosage: UNK
  22. VITAMIN B COMPLEX CAP [Concomitant]
     Dosage: UNK
  23. FUROSEMIDE [Concomitant]
     Dosage: 10 MG, 2X/DAY
  24. POTASSIUM CHLORIDE [Concomitant]
     Dosage: 10 MEQ, 2X/DAY
     Route: 048
  25. OMEPRAZOLE [Concomitant]
     Route: 048

REACTIONS (8)
  - DYSPNOEA [None]
  - MUSCLE SPASMS [None]
  - NERVOUSNESS [None]
  - NEUROPATHY PERIPHERAL [None]
  - PARAESTHESIA [None]
  - RASH ERYTHEMATOUS [None]
  - SKIN EXFOLIATION [None]
  - TREMOR [None]
